FAERS Safety Report 7133195-X (Version None)
Quarter: 2010Q4

REPORT INFORMATION
  Report Type: 
  Country: None (occurrence: None)
  Receive Date: 20101202
  Receipt Date: 20101122
  Transmission Date: 20110411
  Serious: Yes (Other)
  Sender: FDA-Public Use
  Company Number: US-PERRIGO-10US015053

PATIENT
  Age: 64 Year
  Sex: Female
  Weight: 47.619 kg

DRUGS (5)
  1. PHENYLEPHRINE HCL [Suspect]
     Indication: NASAL CONGESTION
     Dosage: UNK
     Route: 045
  2. PHENYLEPHRINE HCL [Suspect]
     Indication: NASAL DRYNESS
  3. DIURETICS [Suspect]
     Indication: EMPHYSEMA
     Dosage: UNK
     Route: 048
  4. DIURETICS [Suspect]
     Indication: SWELLING
  5. OXYGEN [Concomitant]
     Indication: PRODUCT USED FOR UNKNOWN INDICATION
     Dosage: UNK
     Route: 045

REACTIONS (5)
  - DEHYDRATION [None]
  - DISORIENTATION [None]
  - HALLUCINATION [None]
  - INAPPROPRIATE SCHEDULE OF DRUG ADMINISTRATION [None]
  - INCORRECT DRUG ADMINISTRATION DURATION [None]
